FAERS Safety Report 9818766 (Version 2)
Quarter: 2014Q1

REPORT INFORMATION
  Report Type: Spontaneous
  Country: US (occurrence: US)
  Receive Date: 20140115
  Receipt Date: 20140120
  Transmission Date: 20141002
  Serious: Yes (Hospitalization)
  Sender: FDA-Public Use
  Company Number: US-BAXTER-2014BAX000425

PATIENT
  Age: 4 Year
  Sex: Male
  Weight: 16 kg

DRUGS (20)
  1. BUMINATE [Suspect]
     Indication: HEART DISEASE CONGENITAL
     Dosage: 12.5 TO 16 GRAMS PER DOSE
     Route: 042
     Dates: start: 20130907
  2. BUMINATE [Suspect]
     Indication: DISEASE COMPLICATION
     Route: 042
     Dates: start: 20131202
  3. BUMINATE [Suspect]
     Route: 042
     Dates: start: 20131209
  4. BUMINATE [Suspect]
     Route: 042
     Dates: start: 20131213
  5. BUMINATE [Suspect]
     Route: 042
     Dates: start: 20131216
  6. BUMINATE [Suspect]
     Route: 042
     Dates: start: 20131219
  7. BUMINATE [Suspect]
     Route: 065
     Dates: start: 20140106
  8. ASPIRIN [Concomitant]
     Indication: PRODUCT USED FOR UNKNOWN INDICATION
     Route: 065
  9. BUDESONIDE [Concomitant]
     Indication: PRODUCT USED FOR UNKNOWN INDICATION
     Route: 065
  10. COREG [Concomitant]
     Indication: PRODUCT USED FOR UNKNOWN INDICATION
     Route: 065
  11. CHLOROTHIAZIDE [Concomitant]
     Indication: PRODUCT USED FOR UNKNOWN INDICATION
     Route: 065
  12. LASIX [Concomitant]
     Indication: PRODUCT USED FOR UNKNOWN INDICATION
     Route: 065
  13. PREVACID [Concomitant]
     Indication: PRODUCT USED FOR UNKNOWN INDICATION
     Route: 065
  14. PREDNISONE [Concomitant]
     Indication: PRODUCT USED FOR UNKNOWN INDICATION
     Route: 065
  15. ALDACTONE [Concomitant]
     Indication: PRODUCT USED FOR UNKNOWN INDICATION
     Route: 065
  16. LOVENOX [Concomitant]
     Indication: PRODUCT USED FOR UNKNOWN INDICATION
     Route: 058
  17. TADALAFIL [Concomitant]
     Indication: PRODUCT USED FOR UNKNOWN INDICATION
     Route: 065
  18. MAGNESIUM [Concomitant]
     Indication: NUTRITIONAL SUPPLEMENTATION
     Route: 065
  19. POTASSIUM [Concomitant]
     Indication: NUTRITIONAL SUPPLEMENTATION
     Route: 065
  20. VITAMIN D [Concomitant]
     Indication: NUTRITIONAL SUPPLEMENTATION
     Route: 065

REACTIONS (3)
  - Pyrexia [Recovering/Resolving]
  - Diarrhoea [Recovering/Resolving]
  - Antibody test abnormal [Unknown]
